FAERS Safety Report 9228724 (Version 1)
Quarter: 2013Q2

REPORT INFORMATION
  Report Type: Spontaneous
  Country: FR (occurrence: FR)
  Receive Date: 20130412
  Receipt Date: 20130412
  Transmission Date: 20140414
  Serious: Yes (Hospitalization)
  Sender: FDA-Public Use
  Company Number: FR-PFIZER INC-2013106476

PATIENT
  Age: 80 Year
  Sex: Female

DRUGS (16)
  1. ALDACTONE [Suspect]
     Indication: ATRIAL FIBRILLATION
     Dosage: 25 MG, 1X/DAY
     Route: 048
     Dates: start: 20121127, end: 20130104
  2. CORDARONE [Suspect]
     Indication: ATRIAL FIBRILLATION
     Dosage: 400 MG, 1X/DAY
     Route: 048
     Dates: start: 20121123, end: 20130104
  3. CORDARONE [Suspect]
     Dosage: 600 MG, WEEKLY
     Dates: start: 20130111
  4. LASILIX [Suspect]
     Indication: ATRIAL FIBRILLATION
     Dosage: 40 MG, 1X/DAY
     Route: 048
     Dates: start: 20121123, end: 20130104
  5. HEMIGOXINE NATIVELLE [Suspect]
     Indication: ATRIAL FIBRILLATION
     Dosage: 0.125 MG, 1X/DAY
     Route: 048
     Dates: start: 20121127, end: 20130104
  6. HYTACAND [Suspect]
     Indication: ATRIAL FIBRILLATION
     Dosage: 1 DF, 1X/DAY
     Route: 048
     Dates: start: 20121127, end: 20130104
  7. DIFFU K [Suspect]
     Dosage: 1 DF, 1X/DAY
     Route: 048
     Dates: start: 20121123, end: 20130104
  8. PREVISCAN [Concomitant]
     Indication: ATRIAL FIBRILLATION
     Dosage: 15 MG, 1X/DAY
     Route: 048
  9. SINGULAIR [Concomitant]
     Dosage: 10 MG, 1X/DAY
     Route: 048
  10. PANTOPRAZOLE [Concomitant]
     Dosage: 40 MG, 1X/DAY
     Route: 048
  11. PANTOPRAZOLE [Concomitant]
     Dosage: 20 MG, 1X/DAY
     Route: 048
     Dates: start: 20130111
  12. XYZAL [Concomitant]
     Dosage: 5 MG, 1X/DAY
     Route: 048
     Dates: start: 20121127, end: 20130104
  13. ALPHAGAN [Concomitant]
     Dosage: 1 DF, 1X/DAY
     Route: 047
  14. ATROVENT [Concomitant]
     Dosage: UNK
     Route: 055
  15. BRICANYL [Concomitant]
     Dosage: UNK
     Route: 055
  16. PULMICORT [Concomitant]
     Dosage: UNK
     Route: 055

REACTIONS (4)
  - Renal failure acute [Recovered/Resolved]
  - Hyperkalaemia [Recovered/Resolved]
  - Overdose [Recovered/Resolved]
  - Bradycardia [Recovered/Resolved]
